FAERS Safety Report 7529840-7 (Version None)
Quarter: 2011Q2

REPORT INFORMATION
  Report Type: 
  Country: None (occurrence: None)
  Receive Date: 20110607
  Receipt Date: 20110530
  Transmission Date: 20111010
  Serious: Yes (Other)
  Sender: FDA-Public Use
  Company Number: JP-ALLERGAN-1104567US

PATIENT
  Age: 22 Year
  Sex: Female

DRUGS (18)
  1. HIRUDOID [Concomitant]
     Route: 061
     Dates: start: 20100223
  2. KINDAVATE [Suspect]
     Indication: DERMATITIS ATOPIC
     Route: 061
     Dates: start: 20100216
  3. PLACEBO [Suspect]
     Indication: HYPERHIDROSIS
     Dosage: UNK UNITS, SINGLE
     Dates: start: 20100617, end: 20100617
  4. BOTOX [Suspect]
     Indication: HYPERHIDROSIS
     Dosage: 100 UNITS, SINGLE
     Route: 030
     Dates: start: 20101130, end: 20101130
  5. VALTREX [Suspect]
     Indication: HERPES VIRUS INFECTION
     Route: 048
     Dates: start: 20110117, end: 20110121
  6. FULMETA [Concomitant]
     Route: 061
     Dates: start: 20101005
  7. ANTEBATE [Concomitant]
     Route: 061
     Dates: start: 20100216
  8. VEEN-D [Concomitant]
     Dosage: UNK
     Route: 041
     Dates: start: 20100901, end: 20100907
  9. SOLITA-T NO.3 [Concomitant]
     Route: 041
     Dates: start: 20100901, end: 20100907
  10. CEFAZOLIN SODIUM [Concomitant]
     Route: 048
     Dates: start: 20100907, end: 20100912
  11. XYZAL [Suspect]
     Indication: DERMATITIS ATOPIC
     Route: 048
     Dates: start: 20110217
  12. PROPETO [Concomitant]
     Dosage: UNK
     Route: 061
     Dates: start: 20100216
  13. CLOBETASOL PROPIONATE [Suspect]
     Indication: DERMATITIS ATOPIC
     Dosage: UNK
     Route: 061
     Dates: start: 20110322
  14. CHINESE MEDICINE [Concomitant]
     Dosage: UNK
     Route: 048
     Dates: start: 20100501
  15. VITAMEDIN [Concomitant]
     Route: 042
     Dates: start: 20100901, end: 20100907
  16. PANSPORIN [Concomitant]
     Route: 051
     Dates: start: 20100901, end: 20100907
  17. OLOPATADINE HCL [Concomitant]
     Route: 048
     Dates: start: 20101104, end: 20110216
  18. IPD [Concomitant]
     Indication: DERMATITIS ATOPIC
     Dosage: 300 MG, QD
     Route: 048
     Dates: start: 20110322

REACTIONS (2)
  - SELECTIVE ABORTION [None]
  - PREGNANCY [None]
